FAERS Safety Report 10266245 (Version 1)
Quarter: 2014Q2

REPORT INFORMATION
  Report Type: Spontaneous
  Country: JP (occurrence: JP)
  Receive Date: 20140627
  Receipt Date: 20140627
  Transmission Date: 20141212
  Serious: Yes (Other)
  Sender: FDA-Public Use
  Company Number: JP-BRISTOL-MYERS SQUIBB COMPANY-21096672

PATIENT
  Age: 68 Year
  Sex: Male

DRUGS (3)
  1. ERBITUX SOLN FOR INF 5MG/ML [Suspect]
     Indication: TONGUE CANCER RECURRENT
     Route: 041
  2. CISPLATIN [Suspect]
     Indication: TONGUE CANCER RECURRENT
     Route: 042
  3. DOCETAXEL [Suspect]
     Indication: TONGUE CANCER RECURRENT
     Route: 042

REACTIONS (2)
  - Chronic hepatitis C [Not Recovered/Not Resolved]
  - Anaemia [Not Recovered/Not Resolved]
